FAERS Safety Report 4526752-8 (Version None)
Quarter: 2004Q4

REPORT INFORMATION
  Report Type: 
  Country: None (occurrence: None)
  Receive Date: 20041213
  Receipt Date: 20041203
  Transmission Date: 20050328
  Serious: Yes (Other)
  Sender: FDA-Public Use
  Company Number: KII-2004-0014174

PATIENT
  Age: 18 Year
  Sex: Female

DRUGS (2)
  1. MORPHINE SULFATE [Suspect]
     Indication: DRUG USE FOR UNKNOWN INDICATION
     Dosage: Q8H PRN, ORAL
     Route: 048
  2. AMITRIPTYLINE HCL [Suspect]
     Indication: DRUG USE FOR UNKNOWN INDICATION
     Dosage: HS, ORAL
     Route: 048

REACTIONS (6)
  - COMA [None]
  - DRUG SCREEN POSITIVE [None]
  - HEADACHE [None]
  - MENTAL STATUS CHANGES [None]
  - OVERDOSE [None]
  - SHUNT MALFUNCTION [None]
